FAERS Safety Report 18064719 (Version 2)
Quarter: 2020Q3

REPORT INFORMATION
  Report Type: Spontaneous
  Country: US (occurrence: US)
  Receive Date: 20200724
  Receipt Date: 20200904
  Transmission Date: 20201103
  Serious: Yes (Death, Hospitalization, Other)
  Sender: FDA-Public Use
  Company Number: US-009507513-2007USA007880

PATIENT
  Sex: Female

DRUGS (1)
  1. JANUVIA [Suspect]
     Active Substance: SITAGLIPTIN PHOSPHATE
     Indication: TYPE 2 DIABETES MELLITUS
     Dosage: 50 MILLIGRAM, QD
     Route: 048
     Dates: start: 2015, end: 201905

REACTIONS (10)
  - Aortic valve replacement [Unknown]
  - Weight increased [Unknown]
  - Hepatic lesion [Unknown]
  - Death [Fatal]
  - Pancreatic carcinoma [Recovering/Resolving]
  - Anuria [Not Recovered/Not Resolved]
  - Pacemaker generated rhythm [Unknown]
  - Obesity [Unknown]
  - Hepatic cyst [Unknown]
  - Cardiac failure [Unknown]

NARRATIVE: CASE EVENT DATE: 201809
